FAERS Safety Report 8161856-2 (Version None)
Quarter: 2012Q1

REPORT INFORMATION
  Report Type: 
  Country: None (occurrence: None)
  Receive Date: 20120224
  Receipt Date: 20110726
  Transmission Date: 20120608
  Serious: No
  Sender: FDA-Public Use
  Company Number: US-BRISTOL-MYERS SQUIBB COMPANY-15931942

PATIENT
  Age: 88 Year
  Sex: Female

DRUGS (3)
  1. ACTOS [Suspect]
     Indication: DIABETES MELLITUS
  2. METFORMIN HCL [Suspect]
     Indication: DIABETES MELLITUS
  3. AMARYL [Suspect]
     Indication: DIABETES MELLITUS
     Dosage: DOSE INCREASED TO 2MG TWICE A DAY AFTER EVENT OCCURED. TABS
     Route: 048

REACTIONS (1)
  - BLOOD GLUCOSE INCREASED [None]
